FAERS Safety Report 25380292 (Version 7)
Quarter: 2025Q4

REPORT INFORMATION
  Report Type: Spontaneous
  Country: US (occurrence: US)
  Receive Date: 20250530
  Receipt Date: 20251009
  Transmission Date: 20260118
  Serious: Yes (Hospitalization, Other)
  Sender: SANOFI AVENTIS
  Company Number: US-SA-2025SA153059

PATIENT
  Age: 39 Year
  Sex: Female

DRUGS (3)
  1. DUPIXENT [Suspect]
     Active Substance: DUPILUMAB
     Indication: Dermatitis atopic
     Dosage: 600 MG, 1X
     Route: 058
     Dates: start: 20240419, end: 20240419
  2. DUPIXENT [Suspect]
     Active Substance: DUPILUMAB
     Dosage: 300 MG, QOW
     Route: 058
     Dates: start: 2024, end: 20250831
  3. TAKHZYRO [Concomitant]
     Active Substance: LANADELUMAB-FLYO
     Dosage: UNK

REACTIONS (19)
  - Deep vein thrombosis [Recovering/Resolving]
  - Neck pain [Recovering/Resolving]
  - Pain in extremity [Recovering/Resolving]
  - Pneumothorax [Recovered/Resolved]
  - Dyspnoea [Recovering/Resolving]
  - Coagulopathy [Recovering/Resolving]
  - Pyrexia [Unknown]
  - Musculoskeletal stiffness [Unknown]
  - Angioplasty [Unknown]
  - Hospitalisation [Unknown]
  - Weight increased [Unknown]
  - Food allergy [Not Recovered/Not Resolved]
  - Abdominal discomfort [Unknown]
  - Abdominal distension [Recovered/Resolved]
  - Oedema peripheral [Unknown]
  - Localised oedema [Unknown]
  - Swelling face [Recovered/Resolved]
  - Face oedema [Unknown]
  - Eczema [Not Recovered/Not Resolved]

NARRATIVE: CASE EVENT DATE: 20250101
